FAERS Safety Report 8115321-9 (Version None)
Quarter: 2012Q1

REPORT INFORMATION
  Report Type: 
  Country: None (occurrence: None)
  Receive Date: 20120206
  Receipt Date: 20120206
  Transmission Date: 20120608
  Serious: No
  Sender: FDA-Public Use
  Company Number: None

PATIENT
  Sex: Female

DRUGS (1)
  1. CIPROFLOXACIN [Suspect]
     Dosage: 400
     Route: 042

REACTIONS (3)
  - PRURITUS [None]
  - ERYTHEMA [None]
  - INJECTION SITE STREAKING [None]
